FAERS Safety Report 6508629-1 (Version None)
Quarter: 2009Q4

REPORT INFORMATION
  Report Type: 
  Country: None (occurrence: None)
  Receive Date: 20091221
  Receipt Date: 20091211
  Transmission Date: 20100525
  Serious: Yes (Life-Threatening, Hospitalization, Other)
  Sender: FDA-Public Use
  Company Number: US-ELI_LILLY_AND_COMPANY-US200912003083

PATIENT
  Sex: Female

DRUGS (9)
  1. FORTEO [Suspect]
     Indication: OSTEOPOROSIS
     Dosage: 20 UG, DAILY (1/D)
     Dates: start: 20080101, end: 20091001
  2. ADVAIR DISKUS 100/50 [Concomitant]
     Dosage: UNK, 2/D
  3. THEOPHYLLINE [Concomitant]
     Dosage: 300 MG, UNK
  4. FAMOTIDINE [Concomitant]
     Dosage: 20 MG, UNK
  5. FUROSEMIDE [Concomitant]
  6. PROAIR HFA [Concomitant]
  7. SPIRIVA [Concomitant]
  8. LORTAB [Concomitant]
     Dosage: UNK, 2/D
  9. MORPHINE [Concomitant]
     Dosage: UNK, 3/D

REACTIONS (6)
  - AMNESIA [None]
  - HAEMOPTYSIS [None]
  - ILL-DEFINED DISORDER [None]
  - LIFE SUPPORT [None]
  - LOSS OF CONSCIOUSNESS [None]
  - PNEUMONIA [None]
